FAERS Safety Report 19123924 (Version 1)
Quarter: 2021Q2

REPORT INFORMATION
  Report Type: Other
  Country: US (occurrence: US)
  Receive Date: 20210413
  Receipt Date: 20210413
  Transmission Date: 20210717
  Serious: No
  Sender: FDA-Public Use
  Company Number: US-ROCHE-2808804

PATIENT
  Age: 54 Year
  Sex: Male
  Weight: 74.91 kg

DRUGS (8)
  1. IBUPROFEN. [Concomitant]
     Active Substance: IBUPROFEN
  2. TYLENOL [Concomitant]
     Active Substance: ACETAMINOPHEN
  3. OCREVUS [Suspect]
     Active Substance: OCRELIZUMAB
     Indication: RELAPSING-REMITTING MULTIPLE SCLEROSIS
     Route: 042
     Dates: start: 201807
  4. OCREVUS [Suspect]
     Active Substance: OCRELIZUMAB
     Dosage: DAY 1 + DAY 15
     Route: 042
  5. ARMODAFINIL. [Concomitant]
     Active Substance: ARMODAFINIL
  6. ALEVE [Concomitant]
     Active Substance: NAPROXEN SODIUM
  7. DIPHENHYDRAMINE. [Concomitant]
     Active Substance: DIPHENHYDRAMINE
  8. CANNABIS [Concomitant]
     Active Substance: CANNABIS SATIVA SUBSP. INDICA TOP

REACTIONS (7)
  - Nerve compression [Recovered/Resolved]
  - Initial insomnia [Not Recovered/Not Resolved]
  - COVID-19 [Recovered/Resolved]
  - Middle insomnia [Not Recovered/Not Resolved]
  - Fatigue [Not Recovered/Not Resolved]
  - Therapeutic response shortened [Not Recovered/Not Resolved]
  - Fall [Recovered/Resolved]

NARRATIVE: CASE EVENT DATE: 202011
